FAERS Safety Report 9339015 (Version 1)
Quarter: 2013Q2

REPORT INFORMATION
  Report Type: Report from Study
  Country: IT (occurrence: IT)
  Receive Date: 20130610
  Receipt Date: 20130610
  Transmission Date: 20140414
  Serious: Yes (Other)
  Sender: FDA-Public Use
  Company Number: IT-ROCHE-1232443

PATIENT
  Sex: 0

DRUGS (6)
  1. BEVACIZUMAB [Suspect]
     Indication: COLORECTAL CANCER
     Dosage: ON DAY 1 BEFORE CHEMOTHERAPY
     Route: 065
  2. CAPECITABINE [Suspect]
     Indication: COLORECTAL CANCER
     Dosage: 2000MG SQM^1, BID FROM DAY 1 TO DAY 7
     Route: 065
  3. IRINOTECAN [Suspect]
     Indication: COLORECTAL CANCER
     Dosage: 165 MG/SQM ON DAY 1
     Route: 065
  4. OXALIPLATIN [Suspect]
     Indication: COLORECTAL CANCER
     Dosage: 85 MG/SQM ON DAY 1
     Route: 065
  5. FOLINIC ACID [Suspect]
     Indication: COLORECTAL CANCER
     Dosage: 200 MG/SQM ON DAY 1
     Route: 065
  6. FLUOROURACIL [Suspect]
     Indication: COLORECTAL CANCER
     Dosage: 3200 MG/SQM FOR 48 H CONTINUOUS STARTING ON DAY 1
     Route: 065

REACTIONS (4)
  - Hepatic necrosis [Unknown]
  - Periportal sinus dilatation [Unknown]
  - Hepatic steatosis [Unknown]
  - Hepatic steatosis [Unknown]
